FAERS Safety Report 9390689 (Version 2)
Quarter: 2013Q3

REPORT INFORMATION
  Report Type: Report from Study
  Country: JP (occurrence: JP)
  Receive Date: 20130709
  Receipt Date: 20130909
  Transmission Date: 20140515
  Serious: Yes (Death, Hospitalization, Other)
  Sender: FDA-Public Use
  Company Number: JP-GENZYME-THYM-1003890

PATIENT
  Age: 62 Year
  Sex: Male
  Weight: 56 kg

DRUGS (6)
  1. THYMOGLOBULIN [Suspect]
     Indication: BONE MARROW CONDITIONING REGIMEN
     Dosage: 75 MG, QD
     Route: 065
     Dates: start: 20120507, end: 20120508
  2. PREDONINE [Suspect]
     Indication: MONOPARESIS
     Dosage: UNK
     Route: 065
     Dates: start: 20120810, end: 20130117
  3. PREDONINE [Suspect]
     Indication: MUSCLE SPASMS
  4. CYLOCIDE [Suspect]
     Indication: MONOPARESIS
     Dosage: UNK
     Route: 065
     Dates: start: 20120810
  5. CYLOCIDE [Suspect]
     Indication: MUSCLE SPASMS
  6. METILON [Concomitant]
     Indication: PROPHYLAXIS
     Dosage: UNK
     Route: 065
     Dates: start: 20120507, end: 20120508

REACTIONS (11)
  - Death [Fatal]
  - Acute graft versus host disease [Unknown]
  - Acute graft versus host disease in liver [Unknown]
  - Device related infection [Recovered/Resolved]
  - Myelodysplastic syndrome [Unknown]
  - Monoparesis [Unknown]
  - Muscle spasms [Recovered/Resolved with Sequelae]
  - Acute graft versus host disease in skin [Not Recovered/Not Resolved]
  - Engraftment syndrome [Recovered/Resolved]
  - Pyrexia [Recovered/Resolved]
  - Pyrexia [Recovered/Resolved with Sequelae]
